FAERS Safety Report 16000651 (Version 5)
Quarter: 2021Q2

REPORT INFORMATION
  Report Type: Spontaneous
  Country: US (occurrence: US)
  Receive Date: 20190225
  Receipt Date: 20210405
  Transmission Date: 20210716
  Serious: Yes (Hospitalization, Other)
  Sender: FDA-Public Use
  Company Number: US-VIFOR (INTERNATIONAL) INC.-VIT-2016-02246

PATIENT
  Age: 74 Year
  Sex: Male

DRUGS (21)
  1. MECOBALAMIN [Concomitant]
     Active Substance: METHYLCOBALAMIN
  2. CLONIDINE HCL [Concomitant]
     Active Substance: CLONIDINE HYDROCHLORIDE
  3. FUROSEMIDE. [Concomitant]
     Active Substance: FUROSEMIDE
  4. VELTASSA [Suspect]
     Active Substance: PATIROMER
     Route: 048
  5. B12?ACTIVE [Concomitant]
  6. VITAMIN D3 [Concomitant]
     Active Substance: CHOLECALCIFEROL
  7. MINOXIDIL. [Concomitant]
     Active Substance: MINOXIDIL
  8. VELTASSA [Suspect]
     Active Substance: PATIROMER
     Route: 048
     Dates: start: 20160219
  9. CALCITRIOL. [Concomitant]
     Active Substance: CALCITRIOL
  10. GLIPIZIDE. [Concomitant]
     Active Substance: GLIPIZIDE
  11. SODIUM BICARBONATE. [Concomitant]
     Active Substance: SODIUM BICARBONATE
  12. VELTASSA [Suspect]
     Active Substance: PATIROMER
     Route: 048
  13. IRON [Concomitant]
     Active Substance: IRON
  14. LOSARTAN POTASSIUM. [Concomitant]
     Active Substance: LOSARTAN POTASSIUM
  15. ALLOPURINOL. [Concomitant]
     Active Substance: ALLOPURINOL
  16. MAGNESIUM CITRATE. [Concomitant]
     Active Substance: MAGNESIUM CITRATE
  17. VELTASSA [Suspect]
     Active Substance: PATIROMER
     Indication: HYPERKALAEMIA
     Route: 048
     Dates: start: 20160326
  18. SIMVASTATIN. [Concomitant]
     Active Substance: SIMVASTATIN
  19. MULTIVITAMIN MEN [Concomitant]
  20. AMLODIPINE BESYLATE. [Concomitant]
     Active Substance: AMLODIPINE BESYLATE
  21. FINASTERIDE. [Concomitant]
     Active Substance: FINASTERIDE

REACTIONS (7)
  - Influenza like illness [Unknown]
  - Dialysis [Unknown]
  - Bowel movement irregularity [Unknown]
  - Coronary artery bypass [Unknown]
  - Product dose omission issue [Unknown]
  - Peripheral swelling [Unknown]
  - Myocardial infarction [Unknown]

NARRATIVE: CASE EVENT DATE: 20160327
